FAERS Safety Report 9767233 (Version 1)
Quarter: 2013Q4

REPORT INFORMATION
  Report Type: Spontaneous
  Country: US (occurrence: US)
  Receive Date: 20131217
  Receipt Date: 20131217
  Transmission Date: 20140711
  Serious: No
  Sender: FDA-Public Use
  Company Number: US-GLAXOSMITHKLINE-A1044807A

PATIENT
  Age: 64 Year
  Sex: Male

DRUGS (4)
  1. VOTRIENT [Suspect]
     Indication: RENAL CANCER
     Dosage: 400MG PER DAY
     Route: 048
     Dates: start: 20130915, end: 20130921
  2. MORPHINE SULFATE [Concomitant]
  3. TRAMADOL [Concomitant]
  4. METOPROLOL TARTRATE [Concomitant]

REACTIONS (2)
  - Malaise [Unknown]
  - Vomiting [Unknown]
